FAERS Safety Report 8379591-4 (Version None)
Quarter: 2012Q2

REPORT INFORMATION
  Report Type: 
  Country: None (occurrence: None)
  Receive Date: 20120523
  Receipt Date: 20120513
  Transmission Date: 20120825
  Serious: Yes (Disabling, Other)
  Sender: FDA-Public Use
  Company Number: US-JNJFOC-20120109646

PATIENT
  Sex: Female
  Weight: 98.43 kg

DRUGS (23)
  1. LEVAQUIN [Suspect]
     Dosage: FOR 10 DAYS
     Route: 048
     Dates: start: 20111109, end: 20111119
  2. CIPROFLOXACIN HCL [Suspect]
     Indication: PRODUCT USED FOR UNKNOWN INDICATION
     Route: 065
     Dates: start: 20091217
  3. PROPRANOLOL [Concomitant]
     Indication: MIGRAINE
     Route: 065
  4. VITAMIN B-12 [Concomitant]
     Route: 065
  5. LEVAQUIN [Suspect]
     Route: 048
     Dates: start: 20120126, end: 20120129
  6. LEVAQUIN [Suspect]
     Indication: ASTHMA
     Route: 048
     Dates: start: 20120126, end: 20120129
  7. MEDROL [Suspect]
     Route: 065
     Dates: start: 20100909
  8. SYNTHROID [Concomitant]
     Indication: HYPOTHYROIDISM
     Route: 065
  9. QVAR 40 [Suspect]
     Indication: PRODUCT USED FOR UNKNOWN INDICATION
     Route: 055
  10. SINGULAIR [Concomitant]
     Indication: ASTHMA
     Route: 065
  11. LEVAQUIN [Suspect]
     Dosage: FOR 10 DAYS
     Route: 048
     Dates: start: 20111001, end: 20111001
  12. MEDROL [Suspect]
     Route: 065
     Dates: start: 20100610
  13. PROAIR HFA [Concomitant]
     Route: 055
  14. LEVAQUIN [Suspect]
     Dosage: FOR 10 DAYS
     Route: 048
     Dates: start: 20111001, end: 20111001
  15. LEVAQUIN [Suspect]
     Dosage: FOR 10 DAYS
     Route: 048
     Dates: start: 20111001, end: 20111001
  16. LEVAQUIN [Suspect]
     Dosage: FOR 10 DAYS
     Route: 048
     Dates: start: 20111109, end: 20111119
  17. LEVAQUIN [Suspect]
     Indication: BRONCHITIS
     Route: 048
     Dates: start: 20120126, end: 20120129
  18. LEVAQUIN [Suspect]
     Indication: COUGH
     Dosage: FOR 10 DAYS
     Route: 048
     Dates: start: 20120107, end: 20120114
  19. LEVAQUIN [Suspect]
     Dosage: FOR 10 DAYS
     Route: 048
     Dates: start: 20111109, end: 20111119
  20. LEVAQUIN [Suspect]
     Dosage: FOR 10 DAYS
     Route: 048
     Dates: start: 20120107, end: 20120114
  21. LEVAQUIN [Suspect]
     Dosage: FOR 10 DAYS
     Route: 048
     Dates: start: 20120107, end: 20120114
  22. MEDROL [Suspect]
     Indication: PRODUCT USED FOR UNKNOWN INDICATION
     Route: 065
     Dates: start: 20100212
  23. MEDROL [Suspect]
     Route: 065
     Dates: start: 20100415

REACTIONS (13)
  - PARAESTHESIA [None]
  - JOINT SWELLING [None]
  - OEDEMA PERIPHERAL [None]
  - ARTHRALGIA [None]
  - HAEMORRHAGE [None]
  - SKIN DISCOLOURATION [None]
  - JOINT EFFUSION [None]
  - TENDONITIS [None]
  - MUSCULAR WEAKNESS [None]
  - IMMUNE SYSTEM DISORDER [None]
  - NERVE COMPRESSION [None]
  - HYPOAESTHESIA [None]
  - ARTHRITIS [None]
